FAERS Safety Report 9285947 (Version 1)
Quarter: 2013Q2

REPORT INFORMATION
  Report Type: Spontaneous
  Country: ES (occurrence: None)
  Receive Date: 20130506
  Receipt Date: 20130506
  Transmission Date: 20140414
  Serious: Yes (Other)
  Sender: FDA-Public Use
  Company Number: FK201301326

PATIENT
  Age: 46 Year
  Sex: Female

DRUGS (4)
  1. PROPOFOL [Suspect]
     Indication: INDUCTION OF ANAESTHESIA
     Dosage: 1 IN 1 D
     Route: 042
     Dates: start: 20130415, end: 20130415
  2. MIDAZOLAM [Suspect]
     Indication: INDUCTION OF ANAESTHESIA
     Dosage: 1 IN 1 D
     Route: 042
     Dates: start: 20130415, end: 20130415
  3. BUPIVACAINE [Suspect]
     Indication: INDUCTION OF ANAESTHESIA
     Dosage: 1 IN 1 D
     Route: 042
     Dates: start: 20130415, end: 20130415
  4. AMOXICILINA CLAV NORMON [Suspect]
     Indication: PRODUCT USED FOR UNKNOWN INDICATION

REACTIONS (2)
  - Grand mal convulsion [None]
  - Erythema [None]
